FAERS Safety Report 4657903-2 (Version None)
Quarter: 2005Q2

REPORT INFORMATION
  Report Type: 
  Country: None (occurrence: None)
  Receive Date: 20050510
  Receipt Date: 20050304
  Transmission Date: 20051028
  Serious: Yes (Hospitalization)
  Sender: FDA-Public Use
  Company Number: US-ROCHE-397671

PATIENT
  Age: 62 Year
  Sex: Female
  Weight: 91.6 kg

DRUGS (3)
  1. TAMIFLU [Suspect]
     Route: 048
     Dates: start: 20050221, end: 20050221
  2. PAXIL [Concomitant]
     Indication: ANXIETY
     Route: 048
     Dates: start: 20000615
  3. AMOXICILLIN [Concomitant]
     Indication: DRUG USE FOR UNKNOWN INDICATION
     Route: 065
     Dates: start: 20050214

REACTIONS (8)
  - DYSPEPSIA [None]
  - ERYTHEMA [None]
  - HEADACHE [None]
  - HYPERSENSITIVITY [None]
  - PRURITUS [None]
  - RASH [None]
  - SWELLING [None]
  - URTICARIA [None]
